FAERS Safety Report 8195446-2 (Version None)
Quarter: 2012Q1

REPORT INFORMATION
  Report Type: 
  Country: None (occurrence: None)
  Receive Date: 20120308
  Receipt Date: 20120228
  Transmission Date: 20120608
  Serious: Yes (Hospitalization, Other)
  Sender: FDA-Public Use
  Company Number: PHHY2012FR008360

PATIENT
  Sex: Female

DRUGS (4)
  1. PLAVIX [Suspect]
     Dosage: 1 DF, DAILY
     Dates: start: 20060101
  2. CRESTOR [Concomitant]
     Dosage: 5 MG, UNK
  3. OLMESARTAN MEDOXOMIL [Concomitant]
  4. FEMARA [Suspect]
     Indication: BREAST CANCER
     Dosage: 2.5 MG, UNK
     Route: 048
     Dates: start: 20091222

REACTIONS (3)
  - ARTERIAL THROMBOSIS [None]
  - ARTERIAL DISORDER [None]
  - HAEMATOMA [None]
